FAERS Safety Report 4598331-8 (Version None)
Quarter: 2005Q1

REPORT INFORMATION
  Report Type: 
  Country: None (occurrence: None)
  Receive Date: 20050302
  Receipt Date: 20050223
  Transmission Date: 20050727
  Serious: Yes (Other)
  Sender: FDA-Public Use
  Company Number: 440004M05USA

PATIENT
  Sex: Female

DRUGS (1)
  1. SEROSTIM [Suspect]
     Indication: CACHEXIA

REACTIONS (1)
  - THROMBOPHLEBITIS [None]
